FAERS Safety Report 6654626-5 (Version None)
Quarter: 2010Q1

REPORT INFORMATION
  Report Type: 
  Country: None (occurrence: None)
  Receive Date: 20100326
  Receipt Date: 20100324
  Transmission Date: 20100710
  Serious: Yes (Other)
  Sender: FDA-Public Use
  Company Number: FR-WYE-G05826910

PATIENT
  Sex: Female

DRUGS (1)
  1. RHINADVIL [Suspect]
     Dosage: UNKNOWN
     Route: 064
     Dates: start: 20090421, end: 20090426

REACTIONS (1)
  - FOETAL GROWTH RETARDATION [None]
